FAERS Safety Report 6408896-9 (Version None)
Quarter: 2009Q4

REPORT INFORMATION
  Report Type: 
  Country: None (occurrence: None)
  Receive Date: 20091021
  Receipt Date: 20091012
  Transmission Date: 20100525
  Serious: Yes (Disabling, Other)
  Sender: FDA-Public Use
  Company Number: US-MERCK-0910USA02331

PATIENT
  Sex: Female

DRUGS (4)
  1. IVEMEND [Suspect]
     Route: 065
  2. ALAXYL [Concomitant]
     Route: 065
  3. DECADRON [Concomitant]
     Route: 048
  4. BENADRYL [Concomitant]
     Route: 065

REACTIONS (3)
  - DIZZINESS [None]
  - ERYTHEMA [None]
  - FEELING ABNORMAL [None]
